FAERS Safety Report 14780138 (Version 5)
Quarter: 2020Q3

REPORT INFORMATION
  Report Type: Spontaneous
  Country: US (occurrence: US)
  Receive Date: 20180419
  Receipt Date: 20200812
  Transmission Date: 20201102
  Serious: Yes (Hospitalization, Other)
  Sender: FDA-Public Use
  Company Number: US-ASTRAZENECA-2018SE47029

PATIENT
  Age: 21658 Day
  Sex: Male

DRUGS (39)
  1. CLONIDINE. [Concomitant]
     Active Substance: CLONIDINE
  2. SYMBICORT [Concomitant]
     Active Substance: BUDESONIDE\FORMOTEROL FUMARATE DIHYDRATE
  3. LANOXIN [Concomitant]
     Active Substance: DIGOXIN
  4. NIFEDIPINE. [Concomitant]
     Active Substance: NIFEDIPINE
  5. ZITHROMAX [Concomitant]
     Active Substance: AZITHROMYCIN DIHYDRATE
  6. HYDRALAZINE [Concomitant]
     Active Substance: HYDRALAZINE HYDROCHLORIDE
  7. METOPROLOL. [Concomitant]
     Active Substance: METOPROLOL
  8. ALBUTEROL. [Concomitant]
     Active Substance: ALBUTEROL
  9. NITROSTAT [Concomitant]
     Active Substance: NITROGLYCERIN
  10. LOPRESSOR [Concomitant]
     Active Substance: METOPROLOL TARTRATE
  11. PRILOSEC [Suspect]
     Active Substance: OMEPRAZOLE MAGNESIUM
     Indication: GASTROOESOPHAGEAL REFLUX DISEASE
     Dosage: GENERIC20.0MG UNKNOWN
     Route: 065
  12. CARVEDILOL. [Concomitant]
     Active Substance: CARVEDILOL
     Indication: HYPERTENSION
     Route: 065
     Dates: start: 2013
  13. DEXAMETHASONE. [Concomitant]
     Active Substance: DEXAMETHASONE
  14. COREG [Concomitant]
     Active Substance: CARVEDILOL
  15. ROCEPHIN [Concomitant]
     Active Substance: CEFTRIAXONE SODIUM
  16. AMLODIPINE METOPROLOL [Concomitant]
     Indication: HYPERTENSION
     Route: 065
     Dates: start: 2013
  17. LISINOPRIL. [Concomitant]
     Active Substance: LISINOPRIL
     Indication: HYPERTENSION
     Route: 065
     Dates: start: 2013
  18. AMLODIPINE [Concomitant]
     Active Substance: AMLODIPINE BESYLATE
  19. FUROSEMIDE. [Concomitant]
     Active Substance: FUROSEMIDE
  20. SIMVASTATIN. [Concomitant]
     Active Substance: SIMVASTATIN
     Indication: BLOOD CHOLESTEROL INCREASED
     Route: 065
     Dates: start: 2014
  21. ASPIRIN. [Concomitant]
     Active Substance: ASPIRIN
  22. PRILOSEC [Suspect]
     Active Substance: OMEPRAZOLE MAGNESIUM
     Indication: GASTROOESOPHAGEAL REFLUX DISEASE
     Dosage: 20.0MG UNKNOWN
     Route: 048
     Dates: start: 2013
  23. CHANTIX [Concomitant]
     Active Substance: VARENICLINE TARTRATE
  24. MICROZIDE [Concomitant]
     Active Substance: HYDROCHLOROTHIAZIDE
  25. FAMOTIDINE. [Concomitant]
     Active Substance: FAMOTIDINE
  26. FLOXIN [Concomitant]
     Active Substance: OFLOXACIN
  27. ATROVENT [Concomitant]
     Active Substance: IPRATROPIUM BROMIDE
  28. KLOR?CON [Concomitant]
     Active Substance: POTASSIUM CHLORIDE
  29. LOVENOX [Concomitant]
     Active Substance: ENOXAPARIN SODIUM
  30. LEVALBUTEROL. [Concomitant]
     Active Substance: LEVALBUTEROL
  31. AZITHROMYCIN ANHYDROUS. [Concomitant]
     Active Substance: AZITHROMYCIN ANHYDROUS
  32. HYDROCHLOROTHIAZIDE. [Concomitant]
     Active Substance: HYDROCHLOROTHIAZIDE
     Indication: HYPERTENSION
     Route: 065
     Dates: start: 2017
  33. TUMS [Concomitant]
     Active Substance: CALCIUM CARBONATE
  34. NORVASC [Concomitant]
     Active Substance: AMLODIPINE BESYLATE
  35. TYLENOL [Concomitant]
     Active Substance: ACETAMINOPHEN
  36. LASIX [Concomitant]
     Active Substance: FUROSEMIDE
  37. IPRATROPIUM [Concomitant]
     Active Substance: IPRATROPIUM
  38. NEXIUM [Suspect]
     Active Substance: ESOMEPRAZOLE MAGNESIUM
     Indication: GASTROOESOPHAGEAL REFLUX DISEASE
     Route: 048
     Dates: start: 2012, end: 2015
  39. NEXIUM [Suspect]
     Active Substance: ESOMEPRAZOLE MAGNESIUM
     Indication: GASTROOESOPHAGEAL REFLUX DISEASE
     Dosage: 40.0MG UNKNOWN
     Route: 048

REACTIONS (3)
  - Renal failure [Unknown]
  - Chronic kidney disease [Not Recovered/Not Resolved]
  - Acute kidney injury [Unknown]

NARRATIVE: CASE EVENT DATE: 20110103
